FAERS Safety Report 8908332 (Version 3)
Quarter: 2012Q4

REPORT INFORMATION
  Report Type: 
  Country: FR (occurrence: FR)
  Receive Date: 20121114
  Receipt Date: 20121231
  Transmission Date: 20130627
  Serious: Yes (Hospitalization)
  Sender: FDA-Public Use
  Company Number: PHHY2012FR104142

PATIENT
  Age: 33 Year
  Sex: Female

DRUGS (3)
  1. VOLTARENE LP [Suspect]
     Indication: TENDONITIS
     Dosage: UNK UKN, UNK
     Dates: end: 20121009
  2. DAFALGAN [Concomitant]
     Indication: TENDONITIS
     Dates: start: 201210
  3. CODOLIPRANE [Concomitant]
     Indication: TENDONITIS
     Dates: start: 201210

REACTIONS (2)
  - Lung disorder [Recovered/Resolved]
  - Condition aggravated [Recovered/Resolved]
